FAERS Safety Report 7527861-1 (Version None)
Quarter: 2011Q2

REPORT INFORMATION
  Report Type: 
  Country: None (occurrence: None)
  Receive Date: 20110413
  Receipt Date: 20100914
  Transmission Date: 20111010
  Serious: Yes (Hospitalization)
  Sender: FDA-Public Use
  Company Number: 2010PL000145

PATIENT
  Age: 54 Year
  Sex: Male
  Weight: 131 kg

DRUGS (13)
  1. XANAX [Concomitant]
  2. IMDUR [Concomitant]
  3. CLARINEX [Concomitant]
  4. NEXIUM [Concomitant]
  5. XOPENEX [Concomitant]
  6. COLCHICINE [Concomitant]
  7. PROGRAF [Suspect]
     Indication: RENAL TRANSPLANT
     Dosage: 3 MG;UID/QD;PO
     Route: 048
     Dates: start: 19840101
  8. PREDNISONE [Concomitant]
  9. LASIX [Concomitant]
  10. TOPROL-XL [Concomitant]
  11. IMURAN [Suspect]
     Indication: RENAL TRANSPLANT
     Dosage: 100 MG;UID/QD;PO
     Route: 048
     Dates: start: 19840101, end: 20100701
  12. ALLOPURINOL [Concomitant]
  13. ASTELIN [Concomitant]

REACTIONS (2)
  - HEPATITIS [None]
  - LEUKOPENIA [None]
